FAERS Safety Report 8829619 (Version 2)
Quarter: 2014Q3

REPORT INFORMATION
  Report Type: Report from Study
  Country: US (occurrence: US)
  Receive Date: 20121008
  Receipt Date: 20140905
  Transmission Date: 20150326
  Serious: Yes (Hospitalization)
  Sender: FDA-Public Use
  Company Number: US-ROCHE-1131131

PATIENT
  Sex: Male

DRUGS (8)
  1. DIOVAN [Concomitant]
     Active Substance: VALSARTAN
  2. CARDURA [Concomitant]
     Active Substance: DOXAZOSIN MESYLATE
  3. BUMEX [Concomitant]
     Active Substance: BUMETANIDE
  4. RITUXAN [Suspect]
     Active Substance: RITUXIMAB
     Indication: CHRONIC LYMPHOCYTIC LEUKAEMIA
     Route: 042
  5. ANUSOL (BELGIUM) [Concomitant]
  6. AZMACORT [Concomitant]
     Active Substance: TRIAMCINOLONE ACETONIDE
  7. METAMUCIL [Concomitant]
     Active Substance: PLANTAGO SEED
  8. K-DUR [Concomitant]
     Active Substance: POTASSIUM CHLORIDE

REACTIONS (2)
  - Gastrointestinal haemorrhage [Recovered/Resolved]
  - Diarrhoea [Recovered/Resolved]
